FAERS Safety Report 9781458 (Version 2)
Quarter: 2014Q1

REPORT INFORMATION
  Report Type: Spontaneous
  Country: US (occurrence: US)
  Receive Date: 20131224
  Receipt Date: 20140108
  Transmission Date: 20141002
  Serious: Yes (Hospitalization, Other)
  Sender: FDA-Public Use
  Company Number: US-BRISTOL-MYERS SQUIBB COMPANY-19904812

PATIENT
  Age: 88 Year
  Sex: Female
  Weight: 58.96 kg

DRUGS (8)
  1. ABILIFY [Suspect]
     Indication: DEPRESSION
     Dosage: 5 MG
     Dates: start: 201301
  2. FLUOXETINE [Suspect]
     Indication: DEPRESSION
  3. ENALAPRIL [Concomitant]
  4. HYDROCHLOROTHIAZIDE [Concomitant]
  5. BYSTOLIC [Concomitant]
  6. PRAVASTATINE [Concomitant]
  7. ALENDRONATE [Concomitant]
  8. MIRTAZAPINE [Concomitant]

REACTIONS (9)
  - Tardive dyskinesia [Unknown]
  - Convulsion [Unknown]
  - Gait disturbance [Unknown]
  - Abnormal dreams [Unknown]
  - Hallucination [Unknown]
  - Fall [Unknown]
  - Neuropathy peripheral [Unknown]
  - Drug ineffective [Unknown]
  - Wrong technique in drug usage process [Unknown]
